FAERS Safety Report 5877465-1 (Version None)
Quarter: 2008Q3

REPORT INFORMATION
  Report Type: 
  Country: None (occurrence: None)
  Receive Date: 20080909
  Receipt Date: 20080825
  Transmission Date: 20090109
  Serious: Yes (Life-Threatening, Other)
  Sender: FDA-Public Use
  Company Number: 2008S1012486

PATIENT
  Age: 56 Year
  Sex: Male

DRUGS (8)
  1. FENTANYL TRANSDERMAL SYSTEM [Suspect]
     Indication: ARTHRALGIA
     Dosage: 12 UG; EVERY HOUR; TRANSDERMAL
     Route: 062
     Dates: start: 20080608, end: 20080703
  2. FENTANYL TRANSDERMAL SYSTEM [Suspect]
     Indication: BACK PAIN
     Dosage: 12 UG; EVERY HOUR; TRANSDERMAL
     Route: 062
     Dates: start: 20080608, end: 20080703
  3. FENTANYL TRANSDERMAL SYSTEM [Suspect]
     Indication: MYALGIA
     Dosage: 12 UG; EVERY HOUR; TRANSDERMAL
     Route: 062
     Dates: start: 20080608, end: 20080703
  4. VICODIN ES [Concomitant]
  5. KLONOPIN [Concomitant]
  6. CELEXA [Concomitant]
  7. TRAZODONE HCL [Concomitant]
  8. EXCEDRIN /00214201/ [Concomitant]

REACTIONS (30)
  - ABDOMINAL PAIN [None]
  - ABNORMAL DREAMS [None]
  - APPLICATION SITE IRRITATION [None]
  - APPLICATION SITE RASH [None]
  - BACK PAIN [None]
  - CHILLS [None]
  - CONFUSIONAL STATE [None]
  - CONSTIPATION [None]
  - CONTUSION [None]
  - CRYING [None]
  - DELUSION [None]
  - DIARRHOEA [None]
  - DIZZINESS [None]
  - DYSARTHRIA [None]
  - DYSGEUSIA [None]
  - FAECAL INCONTINENCE [None]
  - HALLUCINATION [None]
  - HEADACHE [None]
  - HYPERHIDROSIS [None]
  - LOSS OF CONSCIOUSNESS [None]
  - MOOD SWINGS [None]
  - NAUSEA [None]
  - PHARMACEUTICAL PRODUCT COMPLAINT [None]
  - POLYDIPSIA [None]
  - SUICIDAL IDEATION [None]
  - THERAPEUTIC RESPONSE UNEXPECTED WITH DRUG SUBSTITUTION [None]
  - TREMOR [None]
  - URINARY INCONTINENCE [None]
  - VISION BLURRED [None]
  - VOMITING [None]
